FAERS Safety Report 23562128 (Version 1)
Quarter: 2024Q1

REPORT INFORMATION
  Report Type: Spontaneous
  Country: US (occurrence: US)
  Receive Date: 20240226
  Receipt Date: 20240226
  Transmission Date: 20240409
  Serious: No
  Sender: FDA-Public Use
  Company Number: US-TEVA-VS-3142092

PATIENT
  Age: 78 Year
  Sex: Male

DRUGS (2)
  1. CILOSTAZOL [Suspect]
     Active Substance: CILOSTAZOL
     Indication: Plague
     Route: 065
  2. PLAVIX [Concomitant]
     Active Substance: CLOPIDOGREL BISULFATE

REACTIONS (5)
  - Pain in extremity [Unknown]
  - Back pain [Unknown]
  - Product prescribing issue [Unknown]
  - Myalgia [Unknown]
  - Pain in extremity [Unknown]
